FAERS Safety Report 15983393 (Version 1)
Quarter: 2019Q1

REPORT INFORMATION
  Report Type: Other
  Country: FR (occurrence: FR)
  Receive Date: 20190220
  Receipt Date: 20190220
  Transmission Date: 20190418
  Serious: Yes (Hospitalization)
  Sender: FDA-Public Use
  Company Number: FR-DENTSPLY-2019SCDP000094

PATIENT
  Age: 46 Year
  Sex: Female

DRUGS (1)
  1. MEPIVACAINE HCL [Suspect]
     Active Substance: MEPIVACAINE\MEPIVACAINE HYDROCHLORIDE
     Indication: LOCAL ANAESTHESIA
     Dosage: UNK
     Route: 002
     Dates: start: 20171113, end: 20171113

REACTIONS (1)
  - Skin oedema [Recovered/Resolved]

NARRATIVE: CASE EVENT DATE: 20171113
